FAERS Safety Report 9325170 (Version 1)
Quarter: 2013Q2

REPORT INFORMATION
  Report Type: Report from Study
  Country: NL (occurrence: NL)
  Receive Date: 20130603
  Receipt Date: 20130603
  Transmission Date: 20140414
  Serious: Yes (Hospitalization)
  Sender: FDA-Public Use
  Company Number: NL-TEVA-409116ISR

PATIENT
  Age: 67 Year
  Sex: Female

DRUGS (9)
  1. LIPOSOMAL DOXORUBICIN [Suspect]
  2. PACLITAXEL [Suspect]
     Dosage: 159 MILLIGRAM DAILY;
     Route: 042
     Dates: start: 20120611, end: 20120625
  3. BEVACIZUMAB [Suspect]
     Dosage: 750 MILLIGRAM DAILY;
     Route: 042
     Dates: start: 20120611, end: 20120625
  4. THYRAX [Concomitant]
     Dosage: .075 MILLIGRAM DAILY;
     Dates: start: 20041007
  5. GLICLAZIDE [Concomitant]
     Dosage: 120 MILLIGRAM DAILY;
     Dates: start: 20100907
  6. NOVORAPID [Concomitant]
     Dates: start: 20120611
  7. LEVEMIR [Concomitant]
     Dates: start: 20120618
  8. BISOPROLOL [Concomitant]
     Dosage: 25 MILLIGRAM DAILY;
     Dates: start: 20111101
  9. LOSARTAN POTASSIUM [Concomitant]
     Dosage: 50 MILLIGRAM DAILY;
     Dates: start: 20030101

REACTIONS (1)
  - Cystitis [Recovered/Resolved]
